FAERS Safety Report 9274553 (Version 1)
Quarter: 2013Q2

REPORT INFORMATION
  Report Type: Spontaneous
  Country: ES (occurrence: ES)
  Receive Date: 20130507
  Receipt Date: 20130507
  Transmission Date: 20140414
  Serious: Yes (Other)
  Sender: FDA-Public Use
  Company Number: ES-ROCHE-1220395

PATIENT
  Sex: Female

DRUGS (1)
  1. XOLAIR [Suspect]
     Indication: ANAPHYLACTIC REACTION
     Route: 058
     Dates: start: 20120506, end: 20130219

REACTIONS (12)
  - Sjogren^s syndrome [Not Recovered/Not Resolved]
  - Asthenia [Not Recovered/Not Resolved]
  - Dry mouth [Not Recovered/Not Resolved]
  - Arthralgia [Not Recovered/Not Resolved]
  - Urticaria [Not Recovered/Not Resolved]
  - Nasal dryness [Not Recovered/Not Resolved]
  - Dry eye [Not Recovered/Not Resolved]
  - Submaxillary gland enlargement [Not Recovered/Not Resolved]
  - Lymphadenopathy [Not Recovered/Not Resolved]
  - Complement factor C3 decreased [Unknown]
  - Complement factor C4 decreased [Unknown]
  - Polyarthritis [Not Recovered/Not Resolved]
